FAERS Safety Report 5020279-5 (Version None)
Quarter: 2006Q2

REPORT INFORMATION
  Report Type: 
  Country: None (occurrence: None)
  Receive Date: 20060602
  Receipt Date: 20060512
  Transmission Date: 20061013
  Serious: Yes (Hospitalization)
  Sender: FDA-Public Use
  Company Number: JP200604000848

PATIENT
  Age: 52 Year
  Sex: Male

DRUGS (3)
  1. HUMULIN R [Suspect]
     Indication: DIABETIC KETOACIDOSIS
     Dosage: 10 U, 2/D, INTRAVENOUS
     Route: 042
     Dates: start: 20050511, end: 20050715
  2. PREDNISOLONE [Concomitant]
  3. NORADRENALINE (NOREPINEPHRINE) [Concomitant]

REACTIONS (6)
  - BLOOD CREATININE INCREASED [None]
  - BLOOD GLUCOSE INCREASED [None]
  - HAEMODIALYSIS [None]
  - HYPOKALAEMIA [None]
  - HYPOPHOSPHATAEMIA [None]
  - RHABDOMYOLYSIS [None]
